FAERS Safety Report 5940243-9 (Version None)
Quarter: 2008Q4

REPORT INFORMATION
  Report Type: 
  Country: None (occurrence: None)
  Receive Date: 20081104
  Receipt Date: 20081028
  Transmission Date: 20090506
  Serious: Yes (Hospitalization)
  Sender: FDA-Public Use
  Company Number: US-GILEAD-2008-0017123

PATIENT
  Sex: Male

DRUGS (9)
  1. LETAIRIS [Suspect]
     Indication: PULMONARY ARTERIAL HYPERTENSION
     Route: 048
     Dates: start: 20080327
  2. DILTIAZEM CD [Concomitant]
  3. LISINOPRIL [Concomitant]
  4. HYDROCHLOROTHIAZIDE [Concomitant]
  5. ALBUTEROL [Concomitant]
  6. LEVOTHYROXINE SODIUM [Concomitant]
  7. LANSOPRAZOLE [Concomitant]
  8. GUAIFENESIN [Concomitant]
  9. PREDNISONE TAB [Concomitant]

REACTIONS (1)
  - ANAEMIA [None]
